FAERS Safety Report 21822027 (Version 5)
Quarter: 2023Q2

REPORT INFORMATION
  Report Type: Report from Study
  Country: US (occurrence: US)
  Receive Date: 20230105
  Receipt Date: 20230427
  Transmission Date: 20230721
  Serious: No
  Sender: FDA-Public Use
  Company Number: US-002147023-NVSC2021US315829

PATIENT
  Sex: Female
  Weight: 47.58 kg

DRUGS (3)
  1. TREPROSTINIL [Suspect]
     Active Substance: TREPROSTINIL
     Indication: Pulmonary arterial hypertension
     Dosage: 40 NG/KG/ MIN, CONT
     Route: 058
     Dates: start: 20211111
  2. TREPROSTINIL [Suspect]
     Active Substance: TREPROSTINIL
     Dosage: 50 NG/KG/ MIN, CONT
     Route: 058
  3. OPSUMIT [Concomitant]
     Active Substance: MACITENTAN
     Indication: Product used for unknown indication
     Dosage: UNK
     Route: 065

REACTIONS (4)
  - Infusion site scab [Unknown]
  - Rash [Unknown]
  - Injection site erythema [Unknown]
  - Diarrhoea [Unknown]
